FAERS Safety Report 9918651 (Version 2)
Quarter: 2014Q1

REPORT INFORMATION
  Report Type: Report from Study
  Country: US (occurrence: US)
  Receive Date: 20140224
  Receipt Date: 20140224
  Transmission Date: 20141002
  Serious: Yes (Other)
  Sender: FDA-Public Use
  Company Number: US-ROCHE-1346717

PATIENT
  Sex: Male

DRUGS (10)
  1. LUCENTIS [Suspect]
     Indication: RETINAL OEDEMA
     Route: 050
  2. LUCENTIS [Suspect]
     Indication: VENOUS OCCLUSION
  3. AVASTIN [Suspect]
     Indication: PRODUCT USED FOR UNKNOWN INDICATION
     Route: 065
     Dates: start: 20110815
  4. COUMADIN [Concomitant]
  5. METFORMIN HYDROCHLORIDE [Concomitant]
     Route: 065
  6. COREG [Concomitant]
  7. PLAVIX [Concomitant]
  8. DIGOXIN [Concomitant]
  9. PRAVASTATIN SODIUM [Concomitant]
  10. LISINOPRIL [Concomitant]

REACTIONS (6)
  - Endophthalmitis [Unknown]
  - Infection [Unknown]
  - Visual acuity reduced [Not Recovered/Not Resolved]
  - Vision blurred [Unknown]
  - Vitreous floaters [Recovering/Resolving]
  - Product quality issue [Unknown]
